FAERS Safety Report 8400741-5 (Version None)
Quarter: 2012Q2

REPORT INFORMATION
  Report Type: 
  Country: None (occurrence: None)
  Receive Date: 20120531
  Receipt Date: 20120523
  Transmission Date: 20120825
  Serious: Yes (Hospitalization)
  Sender: FDA-Public Use
  Company Number: US-MERCK-1204USA04342

PATIENT
  Age: 58 Year
  Sex: Male

DRUGS (6)
  1. ZOCOR [Suspect]
     Indication: HYPERTENSION
     Route: 048
  2. PLAVIX [Concomitant]
     Route: 065
  3. ASPIRIN [Concomitant]
     Route: 065
  4. DIOVAN [Concomitant]
     Route: 065
  5. VITAMINS (UNSPECIFIED) [Concomitant]
     Route: 065
  6. KEPPRA [Concomitant]
     Route: 065

REACTIONS (6)
  - SKIN FISSURES [None]
  - CEREBROVASCULAR ACCIDENT [None]
  - CAROTID ARTERY DISSECTION [None]
  - COGNITIVE DISORDER [None]
  - DERMATITIS ALLERGIC [None]
  - CONVULSION [None]
